FAERS Safety Report 15859894 (Version 5)
Quarter: 2019Q3

REPORT INFORMATION
  Report Type: Report from Study
  Country: US (occurrence: US)
  Receive Date: 20190123
  Receipt Date: 20190910
  Transmission Date: 20191004
  Serious: Yes (Hospitalization, Other)
  Sender: FDA-Public Use
  Company Number: US-ACTELION-A-US2015-120583

PATIENT
  Age: 40 Year
  Sex: Female
  Weight: 54.42 kg

DRUGS (9)
  1. VELETRI [Suspect]
     Active Substance: EPOPROSTENOL
     Dosage: UNK
     Route: 042
  2. TRACLEER [Suspect]
     Active Substance: BOSENTAN
     Indication: PULMONARY ARTERIAL HYPERTENSION
     Dosage: 125 MG, BID
     Route: 048
     Dates: start: 20120227, end: 201903
  3. FLONASE [Concomitant]
     Active Substance: FLUTICASONE PROPIONATE
  4. LEVOTHYROXINE. [Concomitant]
     Active Substance: LEVOTHYROXINE
  5. VELETRI [Suspect]
     Active Substance: EPOPROSTENOL
     Indication: PULMONARY ARTERIAL HYPERTENSION
     Dosage: 50 NG/KG, PER MIN
     Route: 042
     Dates: start: 20111102
  6. MULTIFORT [Concomitant]
  7. MIRENA [Concomitant]
     Active Substance: LEVONORGESTREL
  8. SINGULAIR [Concomitant]
     Active Substance: MONTELUKAST SODIUM
  9. DIGOXIN. [Concomitant]
     Active Substance: DIGOXIN

REACTIONS (11)
  - Flushing [Not Recovered/Not Resolved]
  - Headache [Unknown]
  - Product dose omission [Recovered/Resolved]
  - Gout [Unknown]
  - Disease progression [Unknown]
  - Pain in jaw [Not Recovered/Not Resolved]
  - Lung transplant [Recovered/Resolved]
  - Heart transplant [Unknown]
  - Diarrhoea [Unknown]
  - Dyspnoea [Unknown]
  - Dyspnoea exertional [Not Recovered/Not Resolved]

NARRATIVE: CASE EVENT DATE: 201605
